FAERS Safety Report 8247192-4 (Version None)
Quarter: 2012Q1

REPORT INFORMATION
  Report Type: 
  Country: None (occurrence: None)
  Receive Date: 20120330
  Receipt Date: 20120319
  Transmission Date: 20120608
  Serious: Yes (Other)
  Sender: FDA-Public Use
  Company Number: US-BAYER-2012-027157

PATIENT
  Sex: Male

DRUGS (2)
  1. ALKA-SELTZER PLUS COLD AND COUGH (DAY) [Suspect]
     Indication: NASOPHARYNGITIS
     Dosage: 2 DF, ONCE
     Route: 048
     Dates: start: 20120319, end: 20120319
  2. ASPIRIN [Suspect]

REACTIONS (1)
  - DEAFNESS [None]
